FAERS Safety Report 10100041 (Version 2)
Quarter: 2014Q2

REPORT INFORMATION
  Report Type: Report from Study
  Country: IE (occurrence: IE)
  Receive Date: 20140423
  Receipt Date: 20140423
  Transmission Date: 20141212
  Serious: Yes (Other)
  Sender: FDA-Public Use
  Company Number: PHHY2014IE028249

PATIENT
  Age: 44 Year
  Sex: Male

DRUGS (2)
  1. VENLAFAXINE [Suspect]
     Dosage: 150 MG, QD
     Route: 048
  2. GILENYA [Suspect]
     Indication: RELAPSING-REMITTING MULTIPLE SCLEROSIS
     Dosage: 0.5 MG, QD
     Route: 048
     Dates: start: 20130306

REACTIONS (5)
  - Multiple sclerosis relapse [Recovered/Resolved]
  - Paralysis [Unknown]
  - Coordination abnormal [Unknown]
  - Paresis [Unknown]
  - Ataxia [Unknown]
